FAERS Safety Report 9486094 (Version 1)
Quarter: 2013Q3

REPORT INFORMATION
  Report Type: Spontaneous
  Country: US (occurrence: None)
  Receive Date: 20130827
  Receipt Date: 20130827
  Transmission Date: 20140515
  Serious: No
  Sender: FDA-Public Use
  Company Number: None

PATIENT
  Age: 49 Year
  Sex: Female
  Weight: 56.7 kg

DRUGS (1)
  1. LORAZEPAM [Suspect]
     Dosage: 15 PILLS AS NEEDED TAKEN BY MOUTH?1 PILL
     Route: 048

REACTIONS (3)
  - Product substitution issue [None]
  - Product quality issue [None]
  - Drug ineffective [None]
